FAERS Safety Report 10337904 (Version 1)
Quarter: 2014Q3

REPORT INFORMATION
  Report Type: Spontaneous
  Country: US (occurrence: None)
  Receive Date: 20140723
  Receipt Date: 20140723
  Transmission Date: 20150326
  Serious: No
  Sender: FDA-Public Use
  Company Number: None

PATIENT

DRUGS (2)
  1. MAGNESIUM SULFATE [Suspect]
     Active Substance: MAGNESIUM SULFATE
     Dosage: 500ML, BAG.
     Route: 042
  2. HEPARIN SODIUM. [Suspect]
     Active Substance: HEPARIN SODIUM
     Dosage: INJECTABLE?IV 50HEPARIN UNITS/ML  ?BAG 500ML?500 ML ?
     Route: 042

REACTIONS (2)
  - Circumstance or information capable of leading to medication error [None]
  - Product packaging confusion [None]
